FAERS Safety Report 7910461-9 (Version None)
Quarter: 2011Q4

REPORT INFORMATION
  Report Type: 
  Country: None (occurrence: None)
  Receive Date: 20111111
  Receipt Date: 20111101
  Transmission Date: 20120403
  Serious: Yes (Hospitalization, Other)
  Sender: FDA-Public Use
  Company Number: PHHY2011CA93420

PATIENT
  Sex: Male

DRUGS (7)
  1. GLEEVEC [Suspect]
     Dosage: 250 MG, QD
     Route: 048
     Dates: end: 20110713
  2. ATORVASTATIN [Concomitant]
     Dosage: 10 MG, QD
     Route: 048
  3. METOPROLOL [Concomitant]
     Dosage: 250 MG, BID
     Route: 048
  4. RABEPRAZOLE SODIUM [Concomitant]
     Dosage: 20 MG, QD
     Route: 048
  5. SYNTHROID [Concomitant]
     Dosage: 0.025 MG, QD
  6. GLEEVEC [Suspect]
     Indication: CHRONIC MYELOID LEUKAEMIA
     Dosage: 400 MG, QD
     Route: 048
     Dates: start: 20070511
  7. ASPIRIN [Concomitant]
     Dosage: 81 MG, QD

REACTIONS (6)
  - DYSPNOEA [None]
  - DYSPNOEA PAROXYSMAL NOCTURNAL [None]
  - CARDIAC DISORDER [None]
  - CARDIAC FAILURE CONGESTIVE [None]
  - OEDEMA [None]
  - ANAEMIA [None]
